FAERS Safety Report 9301144 (Version 1)
Quarter: 2013Q2

REPORT INFORMATION
  Report Type: Spontaneous
  Country: US (occurrence: None)
  Receive Date: 20130520
  Receipt Date: 20130520
  Transmission Date: 20140414
  Serious: Yes (Life-Threatening)
  Sender: FDA-Public Use
  Company Number: None

PATIENT
  Sex: 0
  Weight: 17 kg

DRUGS (1)
  1. CEFTRIAXONE [Suspect]
     Indication: PNEUMONIA
     Route: 040
     Dates: start: 20121008, end: 20121008

REACTIONS (8)
  - Urticaria [None]
  - Flushing [None]
  - Swelling [None]
  - Hypotension [None]
  - Apnoea [None]
  - Eye movement disorder [None]
  - Pruritus [None]
  - Infusion related reaction [None]
